FAERS Safety Report 17824787 (Version 1)
Quarter: 2020Q2

REPORT INFORMATION
  Report Type: Spontaneous
  Country: US (occurrence: US)
  Receive Date: 20200526
  Receipt Date: 20200526
  Transmission Date: 20200714
  Serious: Yes (Hospitalization)
  Sender: FDA-Public Use
  Company Number: None

PATIENT
  Age: 32 Day
  Sex: Female
  Weight: 48.6 kg

DRUGS (1)
  1. ELLAONE [Suspect]
     Active Substance: ULIPRISTAL ACETATE
     Indication: OVULATION DELAYED
     Dates: start: 20200518, end: 20200518

REACTIONS (3)
  - Abortion spontaneous [None]
  - Maternal exposure before pregnancy [None]
  - Foetal exposure during pregnancy [None]

NARRATIVE: CASE EVENT DATE: 20200521
